FAERS Safety Report 11832502 (Version 3)
Quarter: 2017Q1

REPORT INFORMATION
  Report Type: Spontaneous
  Country: US (occurrence: US)
  Receive Date: 20151214
  Receipt Date: 20170105
  Transmission Date: 20170428
  Serious: No
  Sender: FDA-Public Use
  Company Number: US-PFIZER INC-2015432750

PATIENT
  Age: 70 Year
  Sex: Male
  Weight: 59 kg

DRUGS (11)
  1. VITAMIN B12 [Concomitant]
     Active Substance: CYANOCOBALAMIN
     Dosage: 1000 MG, 1X/DAY
     Route: 048
  2. XALKORI [Suspect]
     Active Substance: CRIZOTINIB
     Dosage: 200 MG, 2X/DAY
     Dates: start: 2014
  3. VICKS NYQUIL [Concomitant]
     Active Substance: ACETAMINOPHEN\DEXTROMETHORPHAN HYDROBROMIDE\DOXYLAMINE SUCCINATE
     Indication: SLEEP DISORDER
     Dosage: TEASPOON
  4. BAYER ASPIRIN [Concomitant]
     Active Substance: ASPIRIN
     Indication: COAGULATION FACTOR
     Dosage: 325 MG, 1X/DAY
     Route: 048
  5. VITAMIN D3 [Concomitant]
     Active Substance: CHOLECALCIFEROL
     Dosage: 2000 IU, 1X/DAY
     Route: 048
  6. DOCQLAX [Concomitant]
     Active Substance: DOCUSATE SODIUM\SENNOSIDES
     Dosage: 100 MG, DAILY
     Route: 048
  7. TRAMADOL. [Concomitant]
     Active Substance: TRAMADOL
     Indication: PAIN
     Dosage: 50 MG, AS NEEDED [EVERY 6 HOURS]
     Route: 048
  8. XALKORI [Suspect]
     Active Substance: CRIZOTINIB
     Indication: LUNG NEOPLASM MALIGNANT
     Dosage: 250 MG, 2X/DAY
     Route: 048
  9. XALKORI [Suspect]
     Active Substance: CRIZOTINIB
     Dosage: UNK
     Dates: end: 20161102
  10. EXCEDRIN [Concomitant]
     Active Substance: ACETAMINOPHEN\ASPIRIN\CAFFEINE
     Indication: BACK PAIN
     Dosage: EXTRA STRENGTH, 250 MG TWO TABLETS A DAY
  11. CALCIUM [Concomitant]
     Active Substance: CALCIUM
     Dosage: 1 DF, 2X/DAY [500-200MG PER UNIT]
     Route: 048

REACTIONS (5)
  - Bowel movement irregularity [Recovered/Resolved]
  - Nausea [Recovered/Resolved]
  - Decreased appetite [Recovered/Resolved]
  - Weight decreased [Not Recovered/Not Resolved]
  - Visual impairment [Recovered/Resolved]
